FAERS Safety Report 5762193-3 (Version None)
Quarter: 2008Q2

REPORT INFORMATION
  Report Type: 
  Country: None (occurrence: None)
  Receive Date: 20080609
  Receipt Date: 20080604
  Transmission Date: 20081010
  Serious: Yes (Hospitalization)
  Sender: FDA-Public Use
  Company Number: ES-BRISTOL-MYERS SQUIBB COMPANY-14064141

PATIENT
  Age: 65 Year
  Sex: Female

DRUGS (5)
  1. TAXOL [Suspect]
     Indication: BREAST CANCER
     Route: 042
     Dates: start: 20080124, end: 20080124
  2. DOXORUBICIN HCL [Suspect]
     Indication: BREAST CANCER
     Dates: start: 20070927, end: 20080124
  3. CYCLOPHOSPHAMIDE [Suspect]
     Indication: BREAST CANCER
     Dates: start: 20070927, end: 20080124
  4. FLUOROURACIL [Suspect]
     Indication: BREAST CANCER
     Dates: start: 20070927, end: 20080124
  5. OMEPRAZOLE [Concomitant]

REACTIONS (2)
  - PNEUMONITIS [None]
  - PULMONARY EMBOLISM [None]
